FAERS Safety Report 5061822-X (Version None)
Quarter: 2006Q3

REPORT INFORMATION
  Report Type: 
  Country: None (occurrence: None)
  Receive Date: 20060720
  Receipt Date: 20060720
  Transmission Date: 20061208
  Serious: Yes (Hospitalization)
  Sender: FDA-Public Use
  Company Number: None

PATIENT
  Age: 62 Year
  Sex: Male
  Weight: 109.8 kg

DRUGS (7)
  1. ATORVASTATIN CALCIUM [Suspect]
     Indication: DYSLIPIDAEMIA
  2. NITROGLYCERIN [Concomitant]
  3. FAMOTIDINE [Concomitant]
  4. ALBUTEROL SPIROS [Concomitant]
  5. ASPIRIN 25 MG/DIPYRIDAMOLE [Concomitant]
  6. ALBUTOEROL 90/ IPRATROP [Concomitant]
  7. QUININE SULFATE [Concomitant]

REACTIONS (1)
  - BLOOD CREATINE PHOSPHOKINASE INCREASED [None]
